FAERS Safety Report 8312493-8 (Version None)
Quarter: 2012Q2

REPORT INFORMATION
  Report Type: 
  Country: None (occurrence: None)
  Receive Date: 20120425
  Receipt Date: 20120417
  Transmission Date: 20120825
  Serious: Yes (Other)
  Sender: FDA-Public Use
  Company Number: FR-MERCK-1204USA02992

PATIENT
  Age: 27 Year
  Sex: Male
  Weight: 80 kg

DRUGS (4)
  1. PROPECIA [Suspect]
     Indication: ANDROGENETIC ALOPECIA
     Route: 048
     Dates: start: 20070701, end: 20081201
  2. PROPECIA [Suspect]
     Route: 048
     Dates: start: 20081201, end: 20100131
  3. ISOXAN FORME [Concomitant]
     Route: 065
  4. BEROCCA C [Concomitant]
     Route: 065

REACTIONS (2)
  - PSYCHOSEXUAL DISORDER [None]
  - SOMATOFORM DISORDER [None]
